FAERS Safety Report 23302939 (Version 1)
Quarter: 2023Q4

REPORT INFORMATION
  Report Type: Spontaneous
  Country: US (occurrence: US)
  Receive Date: 20231215
  Receipt Date: 20231215
  Transmission Date: 20240110
  Serious: No
  Sender: FDA-Public Use
  Company Number: US-PRIMUS-2023-US-034404

PATIENT
  Age: 83 Year
  Sex: Male

DRUGS (1)
  1. IMPOYZ [Suspect]
     Active Substance: CLOBETASOL PROPIONATE
     Indication: Product used for unknown indication
     Dosage: APPLY TOPICALLY TO AFFECTED AREAS ON BACK TWICE A DAY FOR 2 WEEKS, THEN AS NEEDED FOR FLARES.
     Route: 061

REACTIONS (1)
  - Application site vesicles [Unknown]
